FAERS Safety Report 21691519 (Version 1)
Quarter: 2022Q4

REPORT INFORMATION
  Report Type: Spontaneous
  Country: NL (occurrence: NL)
  Receive Date: 20221207
  Receipt Date: 20221207
  Transmission Date: 20230113
  Serious: Yes (Life-Threatening, Hospitalization, Other)
  Sender: FDA-Public Use
  Company Number: NL-LRB-00851908

PATIENT
  Sex: Male
  Weight: 90 kg

DRUGS (1)
  1. AMIODARONE HYDROCHLORIDE [Suspect]
     Active Substance: AMIODARONE HYDROCHLORIDE
     Indication: Atrial fibrillation
     Dosage: 200 MILLIGRAM (TABLET, 200 MG (MILLIGRAM),)
     Route: 065
     Dates: start: 20140301, end: 20201004

REACTIONS (6)
  - Dilatation atrial [Recovered/Resolved]
  - Pulmonary toxicity [Recovered/Resolved]
  - Corneal deposits [Unknown]
  - Skin discolouration [Unknown]
  - Thyroid disorder [Unknown]
  - Visual impairment [Unknown]
